FAERS Safety Report 19956844 (Version 3)
Quarter: 2022Q1

REPORT INFORMATION
  Report Type: Spontaneous
  Country: JP (occurrence: JP)
  Receive Date: 20211014
  Receipt Date: 20220316
  Transmission Date: 20220423
  Serious: Yes (Hospitalization, Other)
  Sender: FDA-Public Use
  Company Number: JP-BRISTOL-MYERS SQUIBB COMPANY-BMS-2021-104966

PATIENT
  Age: 68 Year
  Sex: Male
  Weight: 48.5 kg

DRUGS (10)
  1. YERVOY [Suspect]
     Active Substance: IPILIMUMAB
     Indication: Non-small cell lung cancer
     Dosage: 55 MILLIGRAM, ONE TIME DOSE
     Route: 041
     Dates: start: 20210820, end: 20210820
  2. OPDIVO [Suspect]
     Active Substance: NIVOLUMAB
     Indication: Non-small cell lung cancer
     Dosage: 360 MILLIGRAM, ONE TIME DOSE
     Route: 041
     Dates: start: 20210820, end: 20210910
  3. CARBOPLATIN [Suspect]
     Active Substance: CARBOPLATIN
     Indication: Non-small cell lung cancer
     Dosage: 709 MILLIGRAM
     Route: 041
     Dates: start: 20210820, end: 20210820
  4. CARBOPLATIN [Suspect]
     Active Substance: CARBOPLATIN
     Dosage: 709 MILLIGRAM
     Route: 041
     Dates: start: 20210910, end: 20210910
  5. PACLITAXEL [Suspect]
     Active Substance: PACLITAXEL
     Indication: Non-small cell lung cancer
     Dosage: 312 MILLIGRAM
     Route: 041
     Dates: start: 20210820, end: 20210820
  6. PACLITAXEL [Suspect]
     Active Substance: PACLITAXEL
     Dosage: 312 MILLIGRAM
     Route: 041
     Dates: start: 20210910, end: 20210910
  7. DEXAMETHASONE SODIUM PHOSPHATE [Concomitant]
     Active Substance: DEXAMETHASONE SODIUM PHOSPHATE
     Indication: Product used for unknown indication
     Dosage: 19.8 MILLIGRAM
     Route: 065
     Dates: start: 20210820, end: 20210910
  8. ALOXI [Concomitant]
     Active Substance: PALONOSETRON HYDROCHLORIDE
     Indication: Product used for unknown indication
     Dosage: 0.75 MILLIGRAM
     Route: 065
     Dates: start: 20210820, end: 20210910
  9. FAMOTIDINE [Concomitant]
     Active Substance: FAMOTIDINE
     Indication: Product used for unknown indication
     Dosage: 20 MILLIGRAM
     Route: 065
     Dates: start: 20210820, end: 20210910
  10. DIPHENHYDRAMINE HYDROCHLORIDE [Concomitant]
     Active Substance: DIPHENHYDRAMINE HYDROCHLORIDE
     Indication: Product used for unknown indication
     Dosage: 50 MILLIGRAM
     Route: 048
     Dates: start: 20210820, end: 20210910

REACTIONS (4)
  - Acute febrile neutrophilic dermatosis [Unknown]
  - Anaemia [Recovered/Resolved]
  - Neutropenia [Recovered/Resolved]
  - Renal impairment [Recovering/Resolving]

NARRATIVE: CASE EVENT DATE: 20210829
